APPROVED DRUG PRODUCT: BREVIBLOC DOUBLE STRENGTH IN PLASTIC CONTAINER
Active Ingredient: ESMOLOL HYDROCHLORIDE
Strength: 2GM/100ML
Dosage Form/Route: INJECTABLE;INJECTION
Application: N019386 | Product #005 | TE Code: AP
Applicant: BAXTER HEALTHCARE CORP
Approved: Jan 27, 2003 | RLD: Yes | RS: Yes | Type: RX